FAERS Safety Report 6876461-5 (Version None)
Quarter: 2010Q3

REPORT INFORMATION
  Report Type: 
  Country: None (occurrence: None)
  Receive Date: 20100727
  Receipt Date: 20100712
  Transmission Date: 20110219
  Serious: No
  Sender: FDA-Public Use
  Company Number: DK-PFIZER INC-2010083808

PATIENT
  Age: 11 Year
  Sex: Male
  Weight: 45 kg

DRUGS (3)
  1. ZOLOFT [Suspect]
     Indication: OBSESSIVE-COMPULSIVE DISORDER
     Dosage: 125 MG, UNK
     Dates: start: 20100125
  2. ZOLOFT [Suspect]
     Dosage: 150 MG, UNK
  3. RISPERDAL [Concomitant]
     Dosage: 0.5 MG, UNK
     Dates: start: 20100424

REACTIONS (5)
  - ATTENTION DEFICIT/HYPERACTIVITY DISORDER [None]
  - DIARRHOEA [None]
  - DISTURBANCE IN ATTENTION [None]
  - RESTLESSNESS [None]
  - TREMOR [None]
